FAERS Safety Report 4551763-6 (Version None)
Quarter: 2005Q1

REPORT INFORMATION
  Report Type: 
  Country: None (occurrence: None)
  Receive Date: 20050113
  Receipt Date: 20050112
  Transmission Date: 20050727
  Serious: Yes (Other)
  Sender: FDA-Public Use
  Company Number: US-GLAXOSMITHKLINE-A0540441A

PATIENT
  Age: 50 Year
  Sex: Female

DRUGS (2)
  1. HYCAMTIN [Suspect]
     Dosage: 3.5MGM2 SEVEN TIMES PER DAY
     Route: 042
     Dates: start: 20050105
  2. NO CONCURRENT MEDICATION [Concomitant]

REACTIONS (2)
  - JAUNDICE [None]
  - LIVER FUNCTION TEST ABNORMAL [None]
